FAERS Safety Report 9855253 (Version 1)
Quarter: 2013Q4

REPORT INFORMATION
  Report Type: Spontaneous
  Country: US (occurrence: None)
  Receive Date: 20131226
  Receipt Date: 20131226
  Transmission Date: 20140711
  Serious: Yes (Other)
  Sender: FDA-Public Use
  Company Number: PHEH2013US012441

PATIENT
  Age: 59 Year
  Sex: Female
  Weight: 88.9 kg

DRUGS (14)
  1. GILENYA (FINGOLIMOD) CAPSULE, 0.5MG [Suspect]
     Indication: MULTIPLE SCLEROSIS
     Route: 048
     Dates: start: 20130604
  2. ALEVE (NAPROXEN SODIUM) CAPSULE, 220 MG [Concomitant]
  3. METHYLPHENIDATE (METHYLPHENIDATE) TABLET, 10 MG? [Concomitant]
  4. OXYBUTYNIN (OXYBUTYNIN) TABLET, 5 MG [Concomitant]
  5. ESCITALOPRAM (ESCITALOPRAM)  TABLET [Concomitant]
  6. TIZANIDINE (TIZANIDINE) TABLET, 4 MG [Concomitant]
  7. REBIF (INTERFERON BETA-1A) SOLUTION [Concomitant]
  8. LEVOTHYROXINE (LEVOTHYROXINE) TABLET, 100 UG? [Concomitant]
  9. IBUPROFEN (IBUPROFEN) TABLET, 600 MG [Concomitant]
  10. PRILOSEC (OMEPRAZOLE) CAPSULE, 20 MG [Concomitant]
  11. MIRALAX (MACROGOL) [Concomitant]
  12. MODAFINIL (MODAFINIL) TABLET, 200 MG [Concomitant]
  13. VIT D3 (COLECALCIFEROL) TABLET, 5000 U [Concomitant]
  14. CALCIUM CARBONATE AND VITAMIN D (CALCIUM CARBONATE, COLECALCIFEROL)? [Concomitant]

REACTIONS (3)
  - Atrioventricular block first degree [None]
  - Sinus bradycardia [None]
  - Blood pressure increased [None]
